FAERS Safety Report 10361689 (Version 1)
Quarter: 2014Q3

REPORT INFORMATION
  Report Type: Spontaneous
  Country: JP (occurrence: JP)
  Receive Date: 20140805
  Receipt Date: 20140805
  Transmission Date: 20150326
  Serious: Yes (Death, Hospitalization)
  Sender: FDA-Public Use
  Company Number: JP-ROCHE-1442775

PATIENT
  Age: 84 Year
  Sex: Female

DRUGS (1)
  1. RITUXIMAB [Suspect]
     Active Substance: RITUXIMAB
     Indication: LYMPHOMA
     Route: 065

REACTIONS (4)
  - Ileus [Not Recovered/Not Resolved]
  - Septic shock [Fatal]
  - Systemic candida [Fatal]
  - Cerebral infarction [Not Recovered/Not Resolved]
